FAERS Safety Report 9868942 (Version 4)
Quarter: 2014Q2

REPORT INFORMATION
  Report Type: Report from Study
  Country: CO (occurrence: CO)
  Receive Date: 20140205
  Receipt Date: 20140515
  Transmission Date: 20141212
  Serious: No
  Sender: FDA-Public Use
  Company Number: CO-ROCHE-1344139

PATIENT
  Sex: Female

DRUGS (4)
  1. XOLAIR [Suspect]
     Indication: ASTHMA
     Route: 058
     Dates: start: 2011, end: 2012
  2. XOLAIR [Suspect]
     Route: 058
     Dates: start: 201302, end: 201302
  3. MONTELUKAST [Concomitant]
  4. SALBUTAMOL [Concomitant]

REACTIONS (1)
  - Lung disorder [Not Recovered/Not Resolved]
